FAERS Safety Report 5933396-X (Version None)
Quarter: 2008Q4

REPORT INFORMATION
  Report Type: 
  Country: None (occurrence: None)
  Receive Date: 20081023
  Receipt Date: 20081008
  Transmission Date: 20090506
  Serious: Yes (Other)
  Sender: FDA-Public Use
  Company Number: 238332J08USA

PATIENT
  Age: 64 Year
  Sex: Female
  Weight: 64 kg

DRUGS (12)
  1. REBIF [Suspect]
     Indication: MULTIPLE SCLEROSIS
     Dosage: NOT REPORTED, NOT REPORTED, NOT REPORTED, 44 MCG, 3 IN 1 WEEKS, SUBCUTANEOUS
     Route: 058
     Dates: start: 20000101, end: 20040101
  2. REBIF [Suspect]
     Indication: MULTIPLE SCLEROSIS
     Dosage: NOT REPORTED, NOT REPORTED, NOT REPORTED, 44 MCG, 3 IN 1 WEEKS, SUBCUTANEOUS
     Route: 058
     Dates: start: 20080527, end: 20080101
  3. SYNTRHOID (LEVOTHYROXINE SODIUM) [Concomitant]
  4. LIPITOR [Concomitant]
  5. HYDROCHLOROTHIAZIDE [Concomitant]
  6. OXYTROL [Concomitant]
  7. KLONOPIN [Concomitant]
  8. TIZANIDINE HCL [Concomitant]
  9. LISINOPRIL [Concomitant]
  10. NEURONTIN [Concomitant]
  11. ADVAIR (SERETIDE) [Concomitant]
  12. ALBUTEROL [Concomitant]

REACTIONS (4)
  - BREAST CANCER FEMALE [None]
  - DIALYSIS [None]
  - HYPOPARATHYROIDISM [None]
  - RENAL FAILURE ACUTE [None]
